FAERS Safety Report 4415987-0 (Version None)
Quarter: 2004Q3

REPORT INFORMATION
  Report Type: 
  Country: None (occurrence: None)
  Receive Date: 20040804
  Receipt Date: 20040804
  Transmission Date: 20050211
  Serious: Yes (Other)
  Sender: FDA-Public Use
  Company Number: None

PATIENT
  Age: 28 Year
  Sex: Female
  Weight: 84.369 kg

DRUGS (9)
  1. LEVAQUIN [Suspect]
     Indication: APPENDICITIS
     Dosage: X1
     Dates: start: 20040601
  2. IV D545 [Concomitant]
  3. PEPCID [Concomitant]
  4. VISTARIL [Concomitant]
  5. REGLAN [Concomitant]
  6. SODIUM CHLORI [Concomitant]
  7. DEMEROL [Concomitant]
  8. VICODIN [Concomitant]
  9. AMPICILLIN [Concomitant]

REACTIONS (3)
  - INJECTION SITE REACTION [None]
  - SKIN REACTION [None]
  - VEIN DISORDER [None]
